FAERS Safety Report 24333786 (Version 1)
Quarter: 2024Q3

REPORT INFORMATION
  Report Type: Spontaneous
  Country: CN (occurrence: CN)
  Receive Date: 20240918
  Receipt Date: 20240918
  Transmission Date: 20241017
  Serious: Yes (Other)
  Sender: FRESENIUS KABI
  Company Number: CN-FreseniusKabi-FK202413905

PATIENT
  Age: 66 Year
  Sex: Female
  Weight: 36 kg

DRUGS (1)
  1. EGG PHOSPHOLIPIDS\GLYCERIN\MEDIUM-CHAIN TRIGLYCERIDES\SOYBEAN OIL [Suspect]
     Active Substance: EGG PHOSPHOLIPIDS\GLYCERIN\MEDIUM-CHAIN TRIGLYCERIDES\SOYBEAN OIL
     Indication: Acute myeloid leukaemia
     Dosage: FORM OF ADMIN: INJECTION
     Route: 041
     Dates: start: 20240911, end: 20240913

REACTIONS (6)
  - Tachypnoea [Recovered/Resolved]
  - Hypotension [Recovered/Resolved]
  - Temperature intolerance [Recovered/Resolved]
  - Pyrexia [Recovered/Resolved]
  - Back pain [Recovered/Resolved]
  - Chest discomfort [Recovered/Resolved]

NARRATIVE: CASE EVENT DATE: 20240911
